FAERS Safety Report 4536211-4 (Version None)
Quarter: 2004Q4

REPORT INFORMATION
  Report Type: 
  Country: None (occurrence: None)
  Receive Date: 20041223
  Receipt Date: 20041214
  Transmission Date: 20050328
  Serious: Yes (Other)
  Sender: FDA-Public Use
  Company Number: GB-GLAXOSMITHKLINE-B0361889A

PATIENT
  Age: 32 Year
  Sex: Male

DRUGS (3)
  1. LAMICTAL [Suspect]
     Indication: DEPRESSION
     Dosage: 25MG TWICE PER DAY
     Route: 048
     Dates: start: 20041103, end: 20041110
  2. OLANZAPINE [Concomitant]
     Indication: PSYCHOTIC DISORDER
     Dosage: 10MG PER DAY
     Route: 048
     Dates: start: 20030601
  3. VENLAFAXINE HCL [Concomitant]
     Indication: PSYCHOTIC DISORDER
     Dosage: 300MG PER DAY
     Route: 048
     Dates: start: 20030601

REACTIONS (1)
  - TREMOR [None]
